FAERS Safety Report 9036298 (Version 1)
Quarter: 2013Q1

REPORT INFORMATION
  Report Type: Spontaneous
  Country: US (occurrence: None)
  Receive Date: 20130123
  Receipt Date: 20130123
  Transmission Date: 20140127
  Serious: Yes (Other)
  Sender: FDA-Public Use
  Company Number: None

PATIENT
  Age: 32 Year
  Sex: Female
  Weight: 74.84 kg

DRUGS (3)
  1. RISPERDAL CONSTA [Suspect]
     Indication: SCHIZOPHRENIA, PARANOID TYPE
     Route: 030
     Dates: start: 20081210, end: 20130118
  2. BENZTROPINE [Suspect]
     Dates: start: 20090111, end: 20130118
  3. METROCARE [Concomitant]

REACTIONS (13)
  - Neoplasm malignant [None]
  - Breast enlargement [None]
  - Skin irritation [None]
  - Restless legs syndrome [None]
  - Dry mouth [None]
  - Lymph node palpable [None]
  - Pollakiuria [None]
  - Menstrual disorder [None]
  - Dry eye [None]
  - Dizziness [None]
  - Vision blurred [None]
  - Thinking abnormal [None]
  - Overweight [None]
